FAERS Safety Report 25373734 (Version 1)
Quarter: 2025Q2

REPORT INFORMATION
  Report Type: Spontaneous
  Country: US (occurrence: US)
  Receive Date: 20250529
  Receipt Date: 20250529
  Transmission Date: 20250717
  Serious: No
  Sender: CSL BEHRING
  Company Number: US-BEH-2025206735

PATIENT
  Age: 55 Year
  Sex: Female
  Weight: 43.544 kg

DRUGS (1)
  1. ZEMAIRA [Suspect]
     Active Substance: .ALPHA.1-PROTEINASE INHIBITOR HUMAN
     Indication: Alpha-1 antitrypsin deficiency
     Dosage: UNK, QW
     Route: 042

REACTIONS (2)
  - Dyspepsia [Recovered/Resolved]
  - Memory impairment [Recovered/Resolved]
